FAERS Safety Report 20955569 (Version 1)
Quarter: 2022Q2

REPORT INFORMATION
  Report Type: Spontaneous
  Country: US (occurrence: None)
  Receive Date: 20220613
  Receipt Date: 20220613
  Transmission Date: 20220721
  Serious: Yes (Other)
  Sender: FDA-Public Use
  Company Number: None

PATIENT
  Age: 55 Year
  Sex: Male

DRUGS (9)
  1. AMBRISENTAN [Suspect]
     Active Substance: AMBRISENTAN
     Indication: Pulmonary hypertension
     Dosage: 10MG QD ORAL
     Route: 048
     Dates: start: 20191220
  2. TADALAFIL [Concomitant]
     Active Substance: TADALAFIL
  3. NORCO [Concomitant]
     Active Substance: ACETAMINOPHEN\HYDROCODONE BITARTRATE
  4. NAPROXEN [Concomitant]
     Active Substance: NAPROXEN
  5. PANTOPRAZOLE [Concomitant]
     Active Substance: PANTOPRAZOLE
  6. NALTREXONE [Concomitant]
     Active Substance: NALTREXONE
  7. BUPROPION [Concomitant]
     Active Substance: BUPROPION
  8. LISINOPRIL [Concomitant]
     Active Substance: LISINOPRIL
  9. LEUPROLIDE [Concomitant]
     Active Substance: LEUPROLIDE

REACTIONS (3)
  - Musculoskeletal chest pain [None]
  - Pain in extremity [None]
  - Road traffic accident [None]

NARRATIVE: CASE EVENT DATE: 20220604
